FAERS Safety Report 6851089-1 (Version None)
Quarter: 2010Q3

REPORT INFORMATION
  Report Type: 
  Country: None (occurrence: None)
  Receive Date: 20100716
  Receipt Date: 20071029
  Transmission Date: 20110219
  Serious: No
  Sender: FDA-Public Use
  Company Number: US-PFIZER INC-2007090772

PATIENT
  Sex: Male
  Weight: 86.3 kg

DRUGS (13)
  1. CHANTIX [Suspect]
     Indication: SMOKING CESSATION THERAPY
     Dates: start: 20071024
  2. ASACOL [Concomitant]
  3. AVODART [Concomitant]
  4. ACETYLSALICYLIC ACID [Concomitant]
  5. AZATHIOPRINE [Concomitant]
  6. LIPITOR [Concomitant]
  7. DOXAZOSIN MESYLATE [Concomitant]
  8. LEXAPRO [Concomitant]
  9. PLAVIX [Concomitant]
  10. HYDROCHLOROTHIAZIDE [Concomitant]
  11. METOPROLOL [Concomitant]
  12. PRILOSEC [Concomitant]
  13. VITAMINS [Concomitant]

REACTIONS (1)
  - DIARRHOEA [None]
